FAERS Safety Report 18561113 (Version 1)
Quarter: 2020Q4

REPORT INFORMATION
  Report Type: Spontaneous
  Country: US (occurrence: US)
  Receive Date: 20201130
  Receipt Date: 20201130
  Transmission Date: 20210114
  Serious: Yes (Other)
  Sender: FDA-Public Use
  Company Number: US-009507513-2011USA015276

PATIENT
  Age: 82 Year
  Sex: Female

DRUGS (15)
  1. COZAAR [Suspect]
     Active Substance: LOSARTAN POTASSIUM
     Dosage: 50 MG, QD
  2. AMLODIPINE [Suspect]
     Active Substance: AMLODIPINE BESYLATE
     Dosage: FREQ=1XDAY
  3. POTASSIUM (UNSPECIFIED) [Concomitant]
     Active Substance: POTASSIUM
     Dosage: UNK UKN, UNK
  4. VITAMIN D (UNSPECIFIED) [Concomitant]
     Active Substance: VITAMIN D NOS
     Dosage: UNK UKN, UNK
  5. GABAPENTIN. [Concomitant]
     Active Substance: GABAPENTIN
     Dosage: UNK UKN, UNK
  6. ATENOLOL. [Suspect]
     Active Substance: ATENOLOL
     Dosage: UNK UKN, UNK
  7. PROBIOTICS (UNSPECIFIED) [Concomitant]
     Active Substance: PROBIOTICS NOS
     Dosage: UNK UKN, UNK
  8. VITAMINS (UNSPECIFIED) [Concomitant]
     Active Substance: VITAMINS
     Dosage: UNK UKN, UNK
  9. MAGNESIUM (UNSPECIFIED) [Concomitant]
     Active Substance: MAGNESIUM
     Dosage: UNK UKN, UNK
  10. PRINIVIL [Suspect]
     Active Substance: LISINOPRIL
     Dosage: UNK
  11. VALTURNA [Suspect]
     Active Substance: ALISKIREN HEMIFUMARATE\VALSARTAN
     Dosage: 1 DF, QD (ALSO REPORTED AS DOSE=150/160MG FREQ=2XDAY)
  12. VALTURNA [Suspect]
     Active Substance: ALISKIREN HEMIFUMARATE\VALSARTAN
     Dosage: ALSO REPORTED AS 1 DF, BID AND DOSE=150/160MG FREQ=2XDAY
  13. PREMARIN [Concomitant]
     Active Substance: ESTROGENS, CONJUGATED
     Dosage: UNK UKN, UNK
  14. CLONIDINE. [Concomitant]
     Active Substance: CLONIDINE
     Dosage: UNK UKN, UNK
  15. CHLORTHALIDONE. [Concomitant]
     Active Substance: CHLORTHALIDONE
     Dosage: UNK UKN, UNK

REACTIONS (7)
  - Peripheral swelling [Unknown]
  - Paraesthesia [Unknown]
  - Cough [Unknown]
  - Hypertension [Unknown]
  - Dizziness [Unknown]
  - Swelling face [Unknown]
  - Blood pressure inadequately controlled [Unknown]
